FAERS Safety Report 12277424 (Version 1)
Quarter: 2016Q2

REPORT INFORMATION
  Report Type: Report from Study
  Country: US (occurrence: US)
  Receive Date: 20160418
  Receipt Date: 20160418
  Transmission Date: 20160815
  Serious: Yes (Death, Other)
  Sender: FDA-Public Use
  Company Number: US-GILEAD-2016-0207836

PATIENT
  Age: 52 Year
  Sex: Female

DRUGS (12)
  1. DEMADEX [Concomitant]
     Active Substance: TORSEMIDE
  2. OXYCODONE [Concomitant]
     Active Substance: OXYCODONE
  3. TAMBOCOR [Concomitant]
     Active Substance: FLECAINIDE ACETATE
  4. PROTONIX                           /00661201/ [Concomitant]
     Active Substance: OMEPRAZOLE
  5. ALBUTEROL                          /00139501/ [Concomitant]
     Active Substance: ALBUTEROL
  6. POTASSIUM CHLORIDE. [Concomitant]
     Active Substance: POTASSIUM CHLORIDE
  7. ASPIRIN                            /00002701/ [Concomitant]
     Active Substance: ASPIRIN
  8. AMBRISENTAN [Suspect]
     Active Substance: AMBRISENTAN
     Indication: PULMONARY HYPERTENSION
     Dosage: 5 MG, QD
     Route: 065
     Dates: start: 20160315, end: 20160410
  9. CARVEDILOL. [Concomitant]
     Active Substance: CARVEDILOL
  10. COLACE [Concomitant]
     Active Substance: DOCUSATE SODIUM
  11. COREG [Concomitant]
     Active Substance: CARVEDILOL
  12. NITROSTAT [Concomitant]
     Active Substance: NITROGLYCERIN

REACTIONS (1)
  - Death [Fatal]

NARRATIVE: CASE EVENT DATE: 20160410
